FAERS Safety Report 23886468 (Version 1)
Quarter: 2024Q2

REPORT INFORMATION
  Report Type: Spontaneous
  Country: US (occurrence: US)
  Receive Date: 20240522
  Receipt Date: 20240522
  Transmission Date: 20240716
  Serious: No
  Sender: FDA-Public Use
  Company Number: US-Stemline Therapeutics, Inc.-2024ST001225

PATIENT
  Age: 82 Year
  Sex: Female

DRUGS (1)
  1. ORSERDU [Suspect]
     Active Substance: ELACESTRANT
     Indication: Product used for unknown indication
     Dosage: 345 MG ONCE A DAY
     Route: 048
     Dates: start: 202401

REACTIONS (6)
  - Flatulence [Unknown]
  - Alopecia [Unknown]
  - Arthritis [Unknown]
  - Diarrhoea [Unknown]
  - Fatigue [Unknown]
  - Insomnia [Unknown]
